FAERS Safety Report 18398497 (Version 2)
Quarter: 2023Q2

REPORT INFORMATION
  Report Type: Report from Study
  Country: FR (occurrence: FR)
  Receive Date: 20201019
  Receipt Date: 20230510
  Transmission Date: 20230722
  Serious: Yes (Other)
  Sender: FDA-Public Use
  Company Number: FR-ELI_LILLY_AND_COMPANY-FR202010006404

PATIENT

DRUGS (3)
  1. GEMCITABINE HYDROCHLORIDE [Suspect]
     Active Substance: GEMCITABINE HYDROCHLORIDE
     Indication: Renal cancer metastatic
     Dosage: 1250 MG/M2, CYCLICAL - EVERY 3 WEEKS UP TO 6 CYCLES (D1, D8)
     Route: 042
  2. CISPLATIN [Concomitant]
     Active Substance: CISPLATIN
     Indication: Renal cancer metastatic
     Dosage: 70 MG/M2, CYCLICAL - EVERY 3 WEEKS UP TO 6 CYCLES (D1)
     Route: 065
  3. BEVACIZUMAB [Concomitant]
     Active Substance: BEVACIZUMAB
     Indication: Renal cancer metastatic
     Dosage: 15 MG/KG, CYCLICAL - EVERY 3 WEEKS UP TO 6 CYCLES (D1)
     Route: 065

REACTIONS (1)
  - Nephropathy toxic [Unknown]
